FAERS Safety Report 17150792 (Version 2)
Quarter: 2020Q1

REPORT INFORMATION
  Report Type: Spontaneous
  Country: US (occurrence: US)
  Receive Date: 20191213
  Receipt Date: 20200122
  Transmission Date: 20200409
  Serious: No
  Sender: FDA-Public Use
  Company Number: US-SA-2019SA340473

PATIENT
  Age: 45 Year
  Sex: Male
  Weight: 113.3 kg

DRUGS (1)
  1. DUPIXENT [Suspect]
     Active Substance: DUPILUMAB
     Dosage: UNK
     Dates: start: 20191128

REACTIONS (4)
  - Eye pain [Recovered/Resolved]
  - Eye disorder [Recovered/Resolved]
  - Ocular discomfort [Recovered/Resolved]
  - Disturbance in attention [Unknown]

NARRATIVE: CASE EVENT DATE: 20191128
